FAERS Safety Report 11043153 (Version 1)
Quarter: 2015Q2

REPORT INFORMATION
  Report Type: Spontaneous
  Country: US (occurrence: None)
  Receive Date: 20150416
  Receipt Date: 20150416
  Transmission Date: 20150821
  Serious: Yes (Hospitalization)
  Sender: FDA-Public Use
  Company Number: None

PATIENT
  Age: 69 Year
  Sex: Male
  Weight: 140.9 kg

DRUGS (2)
  1. HYDROMORPHONE [Suspect]
     Active Substance: HYDROMORPHONE
     Indication: PAIN
     Route: 042
     Dates: start: 20150308, end: 20150308
  2. BACLOFEN. [Suspect]
     Active Substance: BACLOFEN
     Indication: PAIN
     Route: 048
     Dates: start: 20150306, end: 20150308

REACTIONS (7)
  - Arthralgia [None]
  - Disorientation [None]
  - Confusional state [None]
  - Sedation [None]
  - Somnolence [None]
  - Respiratory depression [None]
  - Agitation [None]

NARRATIVE: CASE EVENT DATE: 20150308
